FAERS Safety Report 11201809 (Version 1)
Quarter: 2015Q2

REPORT INFORMATION
  Report Type: Spontaneous
  Country: US (occurrence: None)
  Receive Date: 20150617
  Receipt Date: 20150617
  Transmission Date: 20150821
  Serious: Yes (Other)
  Sender: FDA-Public Use
  Company Number: 2015COV00121

PATIENT
  Age: 55 Year
  Sex: Female
  Weight: 117.9 kg

DRUGS (2)
  1. PLAQUENIL [Suspect]
     Active Substance: HYDROXYCHLOROQUINE SULFATE
     Indication: SYSTEMIC LUPUS ERYTHEMATOSUS
     Route: 048
     Dates: start: 1992, end: 2004
  2. NAPROXEN (NAPROXEN) [Concomitant]
     Active Substance: NAPROXEN

REACTIONS (3)
  - Macular degeneration [None]
  - Cataract [None]
  - Blindness [None]

NARRATIVE: CASE EVENT DATE: 2001
